FAERS Safety Report 7811596-1 (Version None)
Quarter: 2011Q4

REPORT INFORMATION
  Report Type: 
  Country: None (occurrence: None)
  Receive Date: 20111013
  Receipt Date: 20111005
  Transmission Date: 20120403
  Serious: Yes (Hospitalization)
  Sender: FDA-Public Use
  Company Number: GB-SANOFI-AVENTIS-2011SA065668

PATIENT
  Age: 68 Year
  Sex: Male

DRUGS (5)
  1. DOCETAXEL [Suspect]
  2. CISPLATIN [Suspect]
  3. CAPECITABINE [Suspect]
  4. DOCETAXEL [Suspect]
     Dates: start: 20110922, end: 20110922
  5. CISPLATIN [Suspect]
     Dates: start: 20110922, end: 20110922

REACTIONS (1)
  - HYPERCALCAEMIA [None]
